FAERS Safety Report 21017469 (Version 1)
Quarter: 2022Q2

REPORT INFORMATION
  Report Type: Spontaneous
  Country: LT (occurrence: LT)
  Receive Date: 20220628
  Receipt Date: 20220628
  Transmission Date: 20220721
  Serious: Yes (Life-Threatening, Hospitalization, Other)
  Sender: FDA-Public Use
  Company Number: None

PATIENT
  Age: 22 Year
  Sex: Female

DRUGS (5)
  1. ARIPIPRAZOLE [Interacting]
     Active Substance: ARIPIPRAZOLE
     Indication: Mental disorder
     Dosage: 10 MG
     Route: 048
     Dates: start: 20220610, end: 20220614
  2. DIAZEPAM [Interacting]
     Active Substance: DIAZEPAM
     Indication: Mental disorder
     Dosage: 5 MG
     Route: 048
     Dates: start: 20220610, end: 20220614
  3. QUETIAPINE [Interacting]
     Active Substance: QUETIAPINE
     Indication: Mental disorder
     Dosage: 25 MG
     Route: 048
     Dates: start: 20220610, end: 20220614
  4. TRAZODONE HYDROCHLORIDE [Interacting]
     Active Substance: TRAZODONE HYDROCHLORIDE
     Indication: Mental disorder
     Dosage: 150 MG
     Route: 048
     Dates: start: 20220610, end: 20220614
  5. ESCITALOPRAM OXALATE [Interacting]
     Active Substance: ESCITALOPRAM OXALATE
     Indication: Mental disorder
     Dosage: 20 MG
     Route: 048
     Dates: start: 20220610, end: 20220614

REACTIONS (9)
  - Suicide attempt [Recovering/Resolving]
  - Abnormal behaviour [Recovering/Resolving]
  - Disorientation [Recovering/Resolving]
  - Mental disorder [Recovering/Resolving]
  - Somnolence [Recovering/Resolving]
  - Drug interaction [Unknown]
  - Intentional overdose [Unknown]
  - Accidental overdose [Unknown]
  - Product use in unapproved indication [Unknown]

NARRATIVE: CASE EVENT DATE: 20220614
